FAERS Safety Report 7245201-2 (Version None)
Quarter: 2011Q1

REPORT INFORMATION
  Report Type: 
  Country: None (occurrence: None)
  Receive Date: 20110118
  Receipt Date: 20110112
  Transmission Date: 20110831
  Serious: Yes (Death)
  Sender: FDA-Public Use
  Company Number: 2011-0121

PATIENT
  Sex: Male

DRUGS (1)
  1. APO-GO AMPOULES (APO-GO) (APOMORPHINE HYDROCHLORIDE) (APOMORPHINE HYDR [Suspect]
     Indication: PRODUCT USED FOR UNKNOWN INDICATION
     Dosage: 4 MG PER HOUR FOR 14 HOURS/DAY (CONTINUOUS INFUSION (8AM TO 10PM)), SUBCUTANEOUS
     Route: 058
     Dates: start: 20090720

REACTIONS (1)
  - NODULE [None]
